FAERS Safety Report 18229531 (Version 9)
Quarter: 2021Q3

REPORT INFORMATION
  Report Type: Spontaneous
  Country: US (occurrence: US)
  Receive Date: 20200903
  Receipt Date: 20210901
  Transmission Date: 20211014
  Serious: Yes (Hospitalization, Other)
  Sender: FDA-Public Use
  Company Number: US-PFIZER INC-2020153992

PATIENT
  Age: 80 Year
  Sex: Female

DRUGS (3)
  1. PREMARIN [Suspect]
     Active Substance: ESTROGENS, CONJUGATED
     Dosage: UNK, TO USE IT 3 TIMES A WEEK
  2. PREMARIN [Suspect]
     Active Substance: ESTROGENS, CONJUGATED
     Indication: URINARY TRACT INFECTION
     Dosage: UNK, DAILY
  3. LYRICA [Concomitant]
     Active Substance: PREGABALIN
     Indication: SPINAL OPERATION
     Dosage: 3?4 TIMES DAILY NEVER EXCEEDING 600 MG TOTAL DAILY

REACTIONS (8)
  - Off label use [Unknown]
  - Pain [Unknown]
  - Urinary retention [Unknown]
  - Urinary tract infection [Unknown]
  - Nervousness [Unknown]
  - Immunodeficiency [Unknown]
  - Drug ineffective for unapproved indication [Unknown]
  - Arthritis [Unknown]
